FAERS Safety Report 22179210 (Version 3)
Quarter: 2023Q2

REPORT INFORMATION
  Report Type: Report from Study
  Country: US (occurrence: US)
  Receive Date: 20230406
  Receipt Date: 20230613
  Transmission Date: 20230722
  Serious: Yes (Other)
  Sender: FDA-Public Use
  Company Number: US-002147023-NVSC2023US074656

PATIENT
  Sex: Female

DRUGS (2)
  1. ENTRESTO [Suspect]
     Active Substance: SACUBITRIL\VALSARTAN
     Indication: Product used for unknown indication
     Dosage: 1 DOSAGE FORM, BID (24/26 MG)
     Route: 048
     Dates: start: 2019
  2. JARDIANCE [Suspect]
     Active Substance: EMPAGLIFLOZIN
     Indication: Product used for unknown indication
     Dosage: UNK
     Route: 065

REACTIONS (10)
  - Ejection fraction decreased [Unknown]
  - Rhinorrhoea [Recovered/Resolved]
  - Rhinorrhoea [Unknown]
  - Nervousness [Unknown]
  - Weight increased [Unknown]
  - Vision blurred [Unknown]
  - Varicose vein [Unknown]
  - Cough [Recovered/Resolved]
  - Cough [Unknown]
  - Fear [Unknown]
